FAERS Safety Report 6275170-3 (Version None)
Quarter: 2009Q3

REPORT INFORMATION
  Report Type: 
  Country: None (occurrence: None)
  Receive Date: 20090721
  Receipt Date: 20090709
  Transmission Date: 20100115
  Serious: Yes (Hospitalization)
  Sender: FDA-Public Use
  Company Number: GB-B.I. PHARMACEUTICALS,INC./RIDGEFIELD-2009-UK-00600UK

PATIENT
  Age: 1 Year
  Sex: Male
  Weight: 11.6 kg

DRUGS (13)
  1. CLONIDINE [Suspect]
     Indication: SEDATION
     Dosage: 2MCG/KG EVERY 6 HOURS
     Route: 048
     Dates: start: 20090624
  2. CLONIDINE [Suspect]
     Dosage: 4MCG/KG EVERY 6 HOURS
     Route: 048
     Dates: start: 20090601
  3. CLONIDINE [Suspect]
     Dosage: 2MCG/KG EVERY 8 HOURS
     Route: 048
     Dates: start: 20090101
  4. CLONIDINE [Suspect]
     Dosage: 1MCG/KG
     Route: 048
     Dates: start: 20090101
  5. ACYCLOVIR [Concomitant]
  6. AMPHOTERICIN B [Concomitant]
  7. HYDROCORTISONE [Concomitant]
  8. MIDAZOLAM HCL [Concomitant]
  9. MORPHINE [Concomitant]
  10. PREDNISOLONE [Concomitant]
  11. RANITIDINE [Concomitant]
  12. URSODIOL [Concomitant]
  13. VITAMIN E [Concomitant]

REACTIONS (2)
  - HYPOTENSION [None]
  - SINUS BRADYCARDIA [None]
